FAERS Safety Report 9804761 (Version 4)
Quarter: 2014Q2

REPORT INFORMATION
  Report Type: Spontaneous
  Country: US (occurrence: US)
  Receive Date: 20140108
  Receipt Date: 20140410
  Transmission Date: 20141212
  Serious: Yes (Hospitalization, Other)
  Sender: FDA-Public Use
  Company Number: US-GILEAD-2014-0091584

PATIENT
  Age: 63 Year
  Sex: Female

DRUGS (3)
  1. LETAIRIS [Suspect]
     Indication: PORTOPULMONARY HYPERTENSION
     Dosage: 5 MG, QD
     Route: 048
     Dates: start: 2012
  2. VELETRI [Concomitant]
  3. ADCIRCA [Concomitant]

REACTIONS (5)
  - Respiratory arrest [Unknown]
  - Syncope [Unknown]
  - Cardiac disorder [Unknown]
  - Lung disorder [Unknown]
  - Herpes zoster [Unknown]
